FAERS Safety Report 4732334-5 (Version None)
Quarter: 2005Q3

REPORT INFORMATION
  Report Type: 
  Country: None (occurrence: None)
  Receive Date: 20050721
  Receipt Date: 20050602
  Transmission Date: 20060218
  Serious: No
  Sender: FDA-Public Use
  Company Number: 2005SP001187

PATIENT
  Weight: 136.0791 kg

DRUGS (1)
  1. LUNESTA [Suspect]
     Dosage: 2 - 4 MG; ORAL
     Route: 048

REACTIONS (2)
  - DRUG INEFFECTIVE [None]
  - INSOMNIA [None]
